FAERS Safety Report 8374695-4 (Version None)
Quarter: 2012Q2

REPORT INFORMATION
  Report Type: 
  Country: None (occurrence: None)
  Receive Date: 20120521
  Receipt Date: 20111104
  Transmission Date: 20120825
  Serious: No
  Sender: FDA-Public Use
  Company Number: US-ASTRAZENECA-2011SE68274

PATIENT
  Sex: Female

DRUGS (4)
  1. PEORIA [Concomitant]
  2. XANAX [Concomitant]
  3. CHOLESTEROL- AND TRIGLYCERIDE REDUCERS [Concomitant]
  4. PRILOSEC OTC [Suspect]
     Indication: FLATULENCE
     Route: 048
     Dates: start: 20110922, end: 20111003

REACTIONS (2)
  - OFF LABEL USE [None]
  - CONSTIPATION [None]
